FAERS Safety Report 19596761 (Version 2)
Quarter: 2022Q3

REPORT INFORMATION
  Report Type: Spontaneous
  Country: LK (occurrence: LK)
  Receive Date: 20210723
  Receipt Date: 20220712
  Transmission Date: 20221027
  Serious: Yes (Other)
  Sender: FDA-Public Use
  Company Number: LK-SUN PHARMACEUTICAL INDUSTRIES LTD-2021R1-304839

PATIENT
  Age: 54 Year
  Sex: Female

DRUGS (1)
  1. DOCETAXEL [Suspect]
     Active Substance: DOCETAXEL
     Indication: Breast cancer
     Dosage: 160 MILLIGRAM, 3/WEEK
     Route: 065
     Dates: start: 20200603, end: 20200624

REACTIONS (2)
  - Interstitial lung disease [Recovering/Resolving]
  - Organising pneumonia [Recovering/Resolving]
